FAERS Safety Report 4370093-9 (Version None)
Quarter: 2004Q2

REPORT INFORMATION
  Report Type: 
  Country: None (occurrence: None)
  Receive Date: 20040527
  Receipt Date: 20040507
  Transmission Date: 20050107
  Serious: Yes (Other)
  Sender: FDA-Public Use
  Company Number: EWC040539235

PATIENT
  Age: 17 Year
  Sex: Female
  Weight: 55 kg

DRUGS (1)
  1. ZYPREXA [Suspect]
     Indication: MANIA
     Dosage: 10 MG/1 DAY
     Dates: start: 20040501

REACTIONS (3)
  - AKATHISIA [None]
  - GALACTORRHOEA [None]
  - LIVER FUNCTION TEST ABNORMAL [None]
